FAERS Safety Report 11680216 (Version 2)
Quarter: 2015Q4

REPORT INFORMATION
  Report Type: Spontaneous
  Country: US (occurrence: US)
  Receive Date: 20151027
  Receipt Date: 20151104
  Transmission Date: 20160304
  Serious: No
  Sender: FDA-Public Use
  Company Number: US-ELI_LILLY_AND_COMPANY-US201010007273

PATIENT
  Age: 76 Year
  Sex: Female

DRUGS (9)
  1. FORTEO [Suspect]
     Active Substance: TERIPARATIDE
     Dosage: 20 UG, DAILY (1/D)
     Route: 058
  2. TRAZODONE [Concomitant]
     Active Substance: TRAZODONE HYDROCHLORIDE
     Dosage: 100 MG, UNKNOWN
     Route: 065
  3. CITRACAL + D [Concomitant]
     Active Substance: CALCIUM CITRATE\VITAMIN D
  4. FORTEO [Suspect]
     Active Substance: TERIPARATIDE
     Indication: OSTEOPOROSIS
     Dosage: 20 UG, DAILY (1/D)
     Route: 058
     Dates: start: 201007
  5. LEVOTHYROXINE. [Concomitant]
     Active Substance: LEVOTHYROXINE
     Dosage: 0.075 MG, UNKNOWN
     Route: 065
  6. ZOLOFT [Concomitant]
     Active Substance: SERTRALINE HYDROCHLORIDE
     Dosage: 200 MG, UNKNOWN
     Route: 065
  7. ZOFRAN [Concomitant]
     Active Substance: ONDANSETRON HYDROCHLORIDE
     Dosage: 4 MG, AS NEEDED
     Route: 065
  8. DIAZEPAM. [Concomitant]
     Active Substance: DIAZEPAM
     Dosage: 2 MG, AS NEEDED
     Route: 065
  9. FORTEO [Suspect]
     Active Substance: TERIPARATIDE
     Dosage: 20 UG, DAILY (1/D)
     Route: 058

REACTIONS (15)
  - Gastric disorder [Not Recovered/Not Resolved]
  - Dysphagia [Unknown]
  - Hypoacusis [Unknown]
  - Vertigo [Unknown]
  - Bronchitis [Recovering/Resolving]
  - Balance disorder [Unknown]
  - Malaise [Not Recovered/Not Resolved]
  - Pain [Unknown]
  - Nausea [Recovering/Resolving]
  - Disorientation [Unknown]
  - Excessive cerumen production [Unknown]
  - Heat stroke [Recovered/Resolved]
  - Gastritis [Unknown]
  - Back pain [Recovering/Resolving]
  - Chronic gastritis [Recovering/Resolving]

NARRATIVE: CASE EVENT DATE: 201009
